FAERS Safety Report 14627828 (Version 2)
Quarter: 2018Q2

REPORT INFORMATION
  Report Type: Spontaneous
  Country: US (occurrence: US)
  Receive Date: 20180312
  Receipt Date: 20180523
  Transmission Date: 20180711
  Serious: Yes (Other)
  Sender: FDA-Public Use
  Company Number: FI-ALLERGAN-1813079US

PATIENT
  Sex: Female

DRUGS (1)
  1. REFRESH CONTACTS [Suspect]
     Active Substance: CARBOXYMETHYLCELLULOSE SODIUM
     Indication: DRY EYE
     Dosage: 2 GTT, UNK
     Route: 047

REACTIONS (4)
  - Product container issue [Unknown]
  - Retinal tear [Recovered/Resolved]
  - Foreign body sensation in eyes [Recovered/Resolved]
  - Retinal disorder [Unknown]

NARRATIVE: CASE EVENT DATE: 20180306
